FAERS Safety Report 25390384 (Version 3)
Quarter: 2025Q3

REPORT INFORMATION
  Report Type: Spontaneous
  Country: JP (occurrence: JP)
  Receive Date: 20250603
  Receipt Date: 20250709
  Transmission Date: 20251020
  Serious: Yes (Hospitalization)
  Sender: NOVARTIS
  Company Number: JP-002147023-NVSJ2025JP005821

PATIENT
  Age: 9 Year
  Sex: Male
  Weight: 24 kg

DRUGS (1)
  1. NEORAL [Suspect]
     Active Substance: CYCLOSPORINE
     Indication: Psoriasis
     Route: 048

REACTIONS (6)
  - Optic neuritis [Recovering/Resolving]
  - Pseudopapilloedema [Recovered/Resolved]
  - Serous retinal detachment [Recovered/Resolved]
  - Retinal exudates [Recovered/Resolved]
  - Cat scratch disease [Unknown]
  - Lymphadenopathy [Unknown]
